FAERS Safety Report 13338806 (Version 1)
Quarter: 2017Q1

REPORT INFORMATION
  Report Type: Spontaneous
  Country: CH (occurrence: CH)
  Receive Date: 20170315
  Receipt Date: 20170315
  Transmission Date: 20170428
  Serious: Yes (Hospitalization)
  Sender: FDA-Public Use
  Company Number: CH-TEVA-748508ISR

PATIENT
  Age: 72 Year
  Sex: Female
  Weight: 58.4 kg

DRUGS (3)
  1. METFORMIN-MEPHA 500 LACTAB [Suspect]
     Active Substance: METFORMIN HYDROCHLORIDE
     Dosage: 500 MILLIGRAM DAILY;
     Route: 048
     Dates: end: 201701
  2. BRINTELLIX [Suspect]
     Active Substance: VORTIOXETINE HYDROBROMIDE
     Dosage: 5 MILLIGRAM DAILY;
     Route: 048
     Dates: start: 20170102, end: 201701
  3. COVERSUM N COMBI [Concomitant]
     Dosage: .5 DOSAGE FORMS DAILY;
     Route: 048
     Dates: end: 201701

REACTIONS (2)
  - Abdominal pain [Recovered/Resolved]
  - Hepatocellular injury [Recovered/Resolved]

NARRATIVE: CASE EVENT DATE: 20170112
